FAERS Safety Report 6866401-7 (Version None)
Quarter: 2010Q2

REPORT INFORMATION
  Report Type: 
  Country: None (occurrence: None)
  Receive Date: 20100602
  Receipt Date: 20090528
  Transmission Date: 20101027
  Serious: Yes (Other)
  Sender: FDA-Public Use
  Company Number: 196578USA

PATIENT
  Sex: Female

DRUGS (1)
  1. CEPHALEXIN [Suspect]
     Dosage: (500 MG)
     Dates: start: 20080421, end: 20080421

REACTIONS (7)
  - ANAPHYLACTIC REACTION [None]
  - EAR DISORDER [None]
  - EAR PAIN [None]
  - PHARYNGEAL OEDEMA [None]
  - PRURITUS [None]
  - SWOLLEN TONGUE [None]
  - TACHYCARDIA [None]
